FAERS Safety Report 16254729 (Version 1)
Quarter: 2019Q2

REPORT INFORMATION
  Report Type: Spontaneous
  Country: FR (occurrence: FR)
  Receive Date: 20190430
  Receipt Date: 20190430
  Transmission Date: 20190711
  Serious: Yes (Hospitalization)
  Sender: FDA-Public Use
  Company Number: FR-TEVA-2019-FR-1041926

PATIENT
  Age: 88 Year
  Sex: Female
  Weight: 67 kg

DRUGS (8)
  1. LASILIX [Concomitant]
     Active Substance: FUROSEMIDE
  2. UN-ALFA [Concomitant]
     Active Substance: ALFACALCIDOL
  3. DIFFU K, GELULE [Concomitant]
     Active Substance: POTASSIUM CHLORIDE
  4. CARDENSIEL [Concomitant]
     Active Substance: BISOPROLOL FUMARATE
  5. AMOXICILLINE [Suspect]
     Active Substance: AMOXICILLIN
     Indication: ERYSIPELAS
     Dosage: 2 DOSAGE FORMS DAILY;
     Route: 048
     Dates: start: 20170627, end: 20170629
  6. DOLIPRANE [Concomitant]
     Active Substance: ACETAMINOPHEN
  7. COUMADINE [Concomitant]
     Active Substance: WARFARIN SODIUM
  8. ALLOPURINOL. [Concomitant]
     Active Substance: ALLOPURINOL

REACTIONS (2)
  - Dermatitis exfoliative generalised [Recovered/Resolved]
  - Pruritus [Recovered/Resolved]

NARRATIVE: CASE EVENT DATE: 20170629
